FAERS Safety Report 10089829 (Version 1)
Quarter: 2014Q2

REPORT INFORMATION
  Report Type: Spontaneous
  Country: DE (occurrence: None)
  Receive Date: 20140417
  Receipt Date: 20140417
  Transmission Date: 20141212
  Serious: Yes (Other)
  Sender: FDA-Public Use
  Company Number: AUR-APL-2014-04349

PATIENT
  Age: 88 Year
  Sex: Female
  Weight: 55 kg

DRUGS (6)
  1. OLANZAPINE (OLANZAPINE) [Suspect]
     Indication: INCREASED APPETITE
     Route: 048
     Dates: start: 20140218, end: 20140312
  2. PROMETHAZIN (PROMETHAZINE HYDROCHLORIDE) [Concomitant]
  3. CITALOPRAM (CITALOPRAM) [Concomitant]
  4. DESLORADERM (DESLORATADINE) [Concomitant]
  5. EUTHYROX (LEVOTHYROXINE SODIUM) [Concomitant]
  6. LACTULOSE (LACTULOSE) [Concomitant]

REACTIONS (3)
  - Immobile [None]
  - Parkinsonism [None]
  - Decreased appetite [None]
